FAERS Safety Report 10697401 (Version 2)
Quarter: 2015Q1

REPORT INFORMATION
  Report Type: Spontaneous
  Country: IT (occurrence: IT)
  Receive Date: 20150108
  Receipt Date: 20150108
  Transmission Date: 20150721
  Serious: Yes (Other)
  Sender: FDA-Public Use
  Company Number: IT-GSKJP-DK201419896002

PATIENT
  Age: 70 Year
  Sex: Female

DRUGS (5)
  1. ALKERAN [Suspect]
     Active Substance: MELPHALAN
     Indication: AMYLOIDOSIS
     Route: 048
     Dates: start: 20140709, end: 20140712
  2. REVLIMID [Concomitant]
     Active Substance: LENALIDOMIDE
     Indication: THROMBOCYTOPENIA
  3. REVLIMID [Concomitant]
     Active Substance: LENALIDOMIDE
     Indication: PANCYTOPENIA
  4. SOLDESAM [Concomitant]
     Active Substance: DEXAMETHASONE
     Indication: AMYLOIDOSIS
     Dosage: 0.2%
     Route: 048
     Dates: start: 20140709, end: 20140730
  5. REVLIMID [Concomitant]
     Active Substance: LENALIDOMIDE
     Indication: AMYLOIDOSIS
     Dosage: FROM 9DEC2013 TO 29DEC2013FROM 3FEB2014 TO 23 MAR2014

REACTIONS (2)
  - Thrombocytopenia [Recovering/Resolving]
  - Off label use [Unknown]

NARRATIVE: CASE EVENT DATE: 20140730
